FAERS Safety Report 8841297 (Version 7)
Quarter: 2015Q3

REPORT INFORMATION
  Report Type: Spontaneous
  Country: US (occurrence: US)
  Receive Date: 20121015
  Receipt Date: 20150727
  Transmission Date: 20151125
  Serious: Yes (Hospitalization, Disabling, Other)
  Sender: FDA-Public Use
  Company Number: US-009507513-1210USA004117

PATIENT
  Sex: Female
  Weight: 73.47 kg

DRUGS (2)
  1. ALENDRONATE SODIUM. [Suspect]
     Active Substance: ALENDRONATE SODIUM
     Indication: OSTEOPOROSIS
     Dosage: 70 MG, QW
     Route: 048
     Dates: start: 20080414
  2. FOSAMAX [Suspect]
     Active Substance: ALENDRONATE SODIUM
     Indication: OSTEOPOROSIS
     Dosage: 70 MG, QW
     Route: 048
     Dates: start: 20020130, end: 200712

REACTIONS (43)
  - Spinal column stenosis [Not Recovered/Not Resolved]
  - Spinal fusion surgery [Unknown]
  - Depression [Unknown]
  - Osteopenia [Unknown]
  - Uterine dilation and curettage [Unknown]
  - Fall [Unknown]
  - Fall [Recovered/Resolved]
  - Spinal osteoarthritis [Unknown]
  - Hyponatraemia [Recovered/Resolved]
  - Gastrooesophageal reflux disease [Unknown]
  - Flatulence [Unknown]
  - Retinal vein occlusion [Unknown]
  - Angiopathy [Unknown]
  - Nasopharyngitis [Unknown]
  - Intervertebral disc degeneration [Unknown]
  - Hypercholesterolaemia [Unknown]
  - Lipoma excision [Unknown]
  - Myalgia [Unknown]
  - Drug ineffective [Unknown]
  - Spinal fusion surgery [Unknown]
  - Spinal laminectomy [Unknown]
  - Scoliosis [Unknown]
  - Large intestinal polypectomy [Unknown]
  - Connective tissue disorder [Unknown]
  - Hypertension [Unknown]
  - Dyspnoea exertional [Not Recovered/Not Resolved]
  - Spondylolisthesis [Unknown]
  - Gastrointestinal motility disorder [Unknown]
  - Limb operation [Unknown]
  - Femur fracture [Recovered/Resolved]
  - Retinal vein occlusion [Unknown]
  - Autoimmune disorder [Unknown]
  - Supraventricular tachycardia [Unknown]
  - Haemorrhoid operation [Unknown]
  - Device failure [Unknown]
  - Constipation [Recovered/Resolved]
  - Spinal fusion surgery [Unknown]
  - Ankle fracture [Unknown]
  - Lumbar radiculopathy [Unknown]
  - Fibrocystic breast disease [Unknown]
  - Spinal fusion surgery [Unknown]
  - Abdominal distension [Recovered/Resolved]
  - Osteoarthritis [Unknown]

NARRATIVE: CASE EVENT DATE: 2004
